FAERS Safety Report 6414035-0 (Version None)
Quarter: 2009Q4

REPORT INFORMATION
  Report Type: 
  Country: None (occurrence: None)
  Receive Date: 20091022
  Receipt Date: 20091022
  Transmission Date: 20100525
  Serious: Yes (Hospitalization)
  Sender: FDA-Public Use
  Company Number: None

PATIENT
  Sex: Female
  Weight: 65.3 kg

DRUGS (9)
  1. CISPLATIN [Suspect]
     Dosage: 121 MG
  2. TAXOL [Suspect]
     Dosage: 313 MG
  3. ADVAIR DISKUS 100/50 [Concomitant]
  4. CALTRATE [Concomitant]
  5. CARTIA XT [Concomitant]
  6. COUMADIN [Concomitant]
  7. DIGOXIN [Concomitant]
  8. OXYCODONE [Concomitant]
  9. PREVACID [Concomitant]

REACTIONS (5)
  - BLOOD CREATININE INCREASED [None]
  - DEHYDRATION [None]
  - HAEMOGLOBIN DECREASED [None]
  - NAUSEA [None]
  - VOMITING [None]
